FAERS Safety Report 5948378-1 (Version None)
Quarter: 2008Q4

REPORT INFORMATION
  Report Type: 
  Country: None (occurrence: None)
  Receive Date: 20081111
  Receipt Date: 20081031
  Transmission Date: 20090506
  Serious: Yes (Life-Threatening, Hospitalization)
  Sender: FDA-Public Use
  Company Number: DK-AVENTIS-200818939GDDC

PATIENT
  Age: 16 Month
  Sex: Male

DRUGS (2)
  1. DDAVP [Suspect]
     Indication: DIABETES INSIPIDUS
     Route: 048
     Dates: start: 20080701
  2. DDAVP [Suspect]
     Route: 048
     Dates: start: 20080701

REACTIONS (1)
  - COMPLEX PARTIAL SEIZURES [None]
